FAERS Safety Report 6590924-1 (Version None)
Quarter: 2010Q1

REPORT INFORMATION
  Report Type: 
  Country: None (occurrence: None)
  Receive Date: 20100219
  Receipt Date: 20100208
  Transmission Date: 20100710
  Serious: Yes (Hospitalization)
  Sender: FDA-Public Use
  Company Number: ZA-ELI_LILLY_AND_COMPANY-ZA201002004125

PATIENT
  Sex: Female

DRUGS (1)
  1. HUMALOG MIX 75/25 [Suspect]
     Indication: DIABETES MELLITUS
     Dosage: 40 U, 2/D
     Route: 065
     Dates: end: 20100201

REACTIONS (5)
  - ABSCESS LIMB [None]
  - BLOOD GLUCOSE INCREASED [None]
  - BREAST ABSCESS [None]
  - INSOMNIA [None]
  - PAIN [None]
